FAERS Safety Report 15419853 (Version 1)
Quarter: 2018Q3

REPORT INFORMATION
  Report Type: Spontaneous
  Country: FR (occurrence: FR)
  Receive Date: 20180924
  Receipt Date: 20180924
  Transmission Date: 20181010
  Serious: Yes (Hospitalization)
  Sender: FDA-Public Use
  Company Number: FR-009507513-1807FRA007909

PATIENT
  Sex: Female
  Weight: 40 kg

DRUGS (4)
  1. TENOFOVIR [Concomitant]
     Active Substance: TENOFOVIR
     Dosage: 245 MG ONE DAILY
     Route: 048
  2. ISENTRESS [Suspect]
     Active Substance: RALTEGRAVIR POTASSIUM
     Dosage: 400 MG TWICE DAILY
     Route: 048
     Dates: end: 20180618
  3. EMTRIVA [Concomitant]
     Active Substance: EMTRICITABINE
     Dosage: 200 MG ONCE DAILY
     Route: 048
  4. ISENTRESS [Suspect]
     Active Substance: RALTEGRAVIR POTASSIUM
     Dosage: UNK
     Route: 048
     Dates: start: 20180618

REACTIONS (1)
  - Aptyalism [Recovered/Resolved]
